FAERS Safety Report 20986063 (Version 1)
Quarter: 2022Q2

REPORT INFORMATION
  Report Type: Spontaneous
  Country: US (occurrence: US)
  Receive Date: 20220621
  Receipt Date: 20220621
  Transmission Date: 20220721
  Serious: No
  Sender: FDA-Public Use
  Company Number: US-GSKCCFUS-Case-01410834_AE-81231

PATIENT
  Age: 58 Year
  Sex: Male

DRUGS (1)
  1. TRELEGY ELLIPTA [Suspect]
     Active Substance: FLUTICASONE FUROATE\UMECLIDINIUM BROMIDE\VILANTEROL TRIFENATATE
     Indication: Dyspnoea
     Dosage: UNK 200/62.5/25 MCG
     Dates: start: 202206

REACTIONS (1)
  - Increased viscosity of upper respiratory secretion [Not Recovered/Not Resolved]

NARRATIVE: CASE EVENT DATE: 20220601
